FAERS Safety Report 10744034 (Version 1)
Quarter: 2015Q1

REPORT INFORMATION
  Report Type: Spontaneous
  Country: US (occurrence: None)
  Receive Date: 20150126
  Receipt Date: 20150126
  Transmission Date: 20150721
  Serious: Yes (Other)
  Sender: FDA-Public Use
  Company Number: None

PATIENT
  Age: 54 Year
  Sex: Male
  Weight: 114.31 kg

DRUGS (1)
  1. HUMIRA [Suspect]
     Active Substance: ADALIMUMAB
     Indication: PSORIATIC ARTHROPATHY
     Dosage: STRENGTH: 40MG, DOSE FORM: INJECTABLE, FREQUENCY: Q2W, ROUTE: SUBCUTANEOUS 057
     Route: 058
     Dates: start: 201310

REACTIONS (6)
  - Hepatic enzyme increased [None]
  - Salivary gland cancer [None]
  - Yellow skin [None]
  - Dizziness [None]
  - Thyroid cancer [None]
  - Vomiting [None]

NARRATIVE: CASE EVENT DATE: 20141115
